FAERS Safety Report 7584082-4 (Version None)
Quarter: 2011Q2

REPORT INFORMATION
  Report Type: 
  Country: None (occurrence: None)
  Receive Date: 20110630
  Receipt Date: 20110624
  Transmission Date: 20111010
  Serious: Yes (Hospitalization, Other)
  Sender: FDA-Public Use
  Company Number: US-MERCK-1009USA05573

PATIENT
  Age: 56 Year
  Sex: Female
  Weight: 109 kg

DRUGS (4)
  1. FOSAMAX [Suspect]
     Route: 048
     Dates: start: 19960901, end: 20010418
  2. FOSAMAX [Suspect]
     Indication: OSTEOPOROSIS
     Route: 048
     Dates: start: 20010401, end: 20080201
  3. FOSAMAX PLUS D [Suspect]
     Route: 048
     Dates: start: 20010419, end: 20080116
  4. ALENDRONATE SODIUM [Suspect]
     Route: 048
     Dates: start: 20080302, end: 20080921

REACTIONS (75)
  - THYROID NEOPLASM [None]
  - OSTEONECROSIS OF JAW [None]
  - ARRHYTHMIA [None]
  - BODY HEIGHT DECREASED [None]
  - INSOMNIA [None]
  - MUSCULOSKELETAL DISCOMFORT [None]
  - COGNITIVE DISORDER [None]
  - BLOOD CHOLESTEROL INCREASED [None]
  - CHEST INJURY [None]
  - SPINAL COMPRESSION FRACTURE [None]
  - CHONDROMALACIA [None]
  - HIATUS HERNIA [None]
  - GINGIVAL RECESSION [None]
  - SCIATICA [None]
  - WEIGHT INCREASED [None]
  - VARICOSE VEIN [None]
  - POLLAKIURIA [None]
  - MENISCUS LESION [None]
  - ARTHROPATHY [None]
  - PAIN [None]
  - HAEMORRHOIDS [None]
  - GASTROOESOPHAGEAL REFLUX DISEASE [None]
  - OSTEONECROSIS [None]
  - BACK PAIN [None]
  - CONTUSION [None]
  - HYPERTROPHY [None]
  - TENDONITIS [None]
  - MYOSITIS [None]
  - MUSCLE SPASMS [None]
  - JOINT INJURY [None]
  - OVERDOSE [None]
  - DIVERTICULUM INTESTINAL [None]
  - GLAUCOMA [None]
  - TRANSIENT ISCHAEMIC ATTACK [None]
  - LABILE BLOOD PRESSURE [None]
  - OSTEOARTHRITIS [None]
  - TEMPERATURE INTOLERANCE [None]
  - DIPLOPIA [None]
  - COLONIC POLYP [None]
  - HYPERLIPIDAEMIA [None]
  - TOOTH DISORDER [None]
  - SLEEP APNOEA SYNDROME [None]
  - VERTIGO [None]
  - MONONEURITIS [None]
  - PAIN IN EXTREMITY [None]
  - GINGIVAL BLEEDING [None]
  - GASTRITIS EROSIVE [None]
  - BONE LOSS [None]
  - CHANGE OF BOWEL HABIT [None]
  - ABDOMINAL PAIN [None]
  - FALL [None]
  - LACERATION [None]
  - INTRACRANIAL HAEMATOMA [None]
  - SYNOVIAL CYST [None]
  - FACE INJURY [None]
  - HEADACHE [None]
  - HEAD INJURY [None]
  - OBESITY [None]
  - MIGRAINE [None]
  - OSTEOPENIA [None]
  - FATIGUE [None]
  - FEMUR FRACTURE [None]
  - RIB FRACTURE [None]
  - DIZZINESS [None]
  - HYPERSENSITIVITY [None]
  - BURSITIS [None]
  - NEPHROLITHIASIS [None]
  - FRACTURE [None]
  - JOINT EFFUSION [None]
  - DEPRESSION [None]
  - HYPERTENSION [None]
  - INTERVERTEBRAL DISC PROTRUSION [None]
  - ARTHRALGIA [None]
  - CALCIUM DEFICIENCY [None]
  - APHTHOUS STOMATITIS [None]
